FAERS Safety Report 23606734 (Version 1)
Quarter: 2024Q1

REPORT INFORMATION
  Report Type: Spontaneous
  Country: US (occurrence: US)
  Receive Date: 20240307
  Receipt Date: 20240307
  Transmission Date: 20240410
  Serious: No
  Sender: FDA-Public Use
  Company Number: US-GSKCCFUS-Case-01947212_AE-108190

PATIENT
  Age: 68 Year
  Sex: Male

DRUGS (1)
  1. NUCALA [Suspect]
     Active Substance: MEPOLIZUMAB
     Indication: Product used for unknown indication
     Dosage: 100 MG
     Dates: start: 20240209

REACTIONS (6)
  - Muscle spasms [Not Recovered/Not Resolved]
  - Bacterial infection [Unknown]
  - Bursitis [Unknown]
  - Condition aggravated [Unknown]
  - Asthenia [Not Recovered/Not Resolved]
  - Loss of personal independence in daily activities [Unknown]

NARRATIVE: CASE EVENT DATE: 20240224
